FAERS Safety Report 6382963-0 (Version None)
Quarter: 2009Q3

REPORT INFORMATION
  Report Type: 
  Country: None (occurrence: None)
  Receive Date: 20090930
  Receipt Date: 20090925
  Transmission Date: 20100115
  Serious: Yes (Hospitalization)
  Sender: FDA-Public Use
  Company Number: US-B.I. PHARMACEUTICALS,INC./RIDGEFIELD-2009-BP-08501BP

PATIENT
  Sex: Female

DRUGS (4)
  1. SPIRIVA [Suspect]
     Indication: EMPHYSEMA
     Dosage: 18 MCG
     Route: 055
     Dates: start: 20070101
  2. SPIRIVA [Suspect]
     Indication: CHRONIC OBSTRUCTIVE PULMONARY DISEASE
  3. COSOP [Concomitant]
     Indication: GLAUCOMA
  4. COSOP [Concomitant]
     Indication: INTRAOCULAR PRESSURE INCREASED

REACTIONS (4)
  - ARTHRALGIA [None]
  - FALL [None]
  - HERPES ZOSTER [None]
  - JOINT INJURY [None]
